FAERS Safety Report 6196118-6 (Version None)
Quarter: 2009Q2

REPORT INFORMATION
  Report Type: 
  Country: None (occurrence: None)
  Receive Date: 20090520
  Receipt Date: 20090508
  Transmission Date: 20091009
  Serious: Yes (Other)
  Sender: FDA-Public Use
  Company Number: JP-PFIZER INC-2009201470

PATIENT
  Age: 71 Year

DRUGS (11)
  1. ZITHROMAX [Suspect]
     Indication: UPPER RESPIRATORY TRACT INFLAMMATION
     Dosage: UNK
     Dates: start: 20090413, end: 20090415
  2. THYRADIN S [Concomitant]
     Dosage: UNK
     Route: 048
     Dates: start: 19960628
  3. LASIX [Concomitant]
     Route: 048
     Dates: start: 20020417
  4. ALLOZYM [Concomitant]
     Dosage: UNK
     Route: 048
     Dates: start: 20020417
  5. MAGNESIUM OXIDE [Concomitant]
     Route: 048
     Dates: start: 20050104
  6. ALEVIATIN [Concomitant]
     Dosage: UNK
     Route: 048
     Dates: start: 20030117
  7. GASCON [Concomitant]
     Dosage: UNK
     Route: 048
     Dates: start: 20060313
  8. DEPAKENE [Concomitant]
     Dosage: UNK
     Route: 048
     Dates: start: 20041129
  9. LEVOTOMIN [Concomitant]
     Dosage: UNK
     Route: 048
     Dates: start: 20030108
  10. TEGRETOL [Concomitant]
     Dosage: UNK
     Route: 048
     Dates: start: 20040304
  11. NEOPHYLLIN [Concomitant]
     Dosage: UNK
     Route: 048
     Dates: start: 20090115

REACTIONS (2)
  - RENAL FAILURE [None]
  - RHABDOMYOLYSIS [None]
